FAERS Safety Report 13392428 (Version 1)
Quarter: 2017Q1

REPORT INFORMATION
  Report Type: Spontaneous
  Country: FR (occurrence: FR)
  Receive Date: 20170331
  Receipt Date: 20170331
  Transmission Date: 20170429
  Serious: Yes (Hospitalization)
  Sender: FDA-Public Use
  Company Number: FR-ASTRAZENECA-2017SE32256

PATIENT
  Age: 12373 Day
  Sex: Male

DRUGS (8)
  1. COUMADINE [Concomitant]
     Active Substance: WARFARIN SODIUM
     Dates: start: 201506
  2. ZOPHREN [Suspect]
     Active Substance: ONDANSETRON
     Route: 048
     Dates: end: 20170215
  3. INEXIUM [Suspect]
     Active Substance: ESOMEPRAZOLE
     Route: 048
  4. ZOPHREN [Suspect]
     Active Substance: ONDANSETRON
     Route: 048
  5. SMECTA [Concomitant]
     Active Substance: MONTMORILLONITE
  6. GAVISCON [Concomitant]
     Active Substance: ALUMINUM HYDROXIDE\MAGNESIUM CARBONATE
  7. INEXIUM [Suspect]
     Active Substance: ESOMEPRAZOLE
     Route: 048
     Dates: end: 20170214
  8. TAZOCILLINE [Suspect]
     Active Substance: PIPERACILLIN SODIUM\TAZOBACTAM SODIUM
     Indication: PNEUMONIA
     Route: 042
     Dates: start: 201702, end: 20170214

REACTIONS (5)
  - Generalised oedema [Unknown]
  - Hypoalbuminaemia [Unknown]
  - Hepatocellular injury [Recovered/Resolved]
  - Pneumonia [Unknown]
  - Diarrhoea [Unknown]

NARRATIVE: CASE EVENT DATE: 20170206
